FAERS Safety Report 26100054 (Version 1)
Quarter: 2025Q4

REPORT INFORMATION
  Report Type: Spontaneous
  Country: JP (occurrence: JP)
  Receive Date: 20251128
  Receipt Date: 20251128
  Transmission Date: 20260117
  Serious: Yes (Other)
  Sender: ACCORD
  Company Number: JP-Accord-514751

PATIENT
  Age: 62 Year
  Sex: Male

DRUGS (2)
  1. PACLITAXEL [Suspect]
     Active Substance: PACLITAXEL
     Indication: Ductal adenocarcinoma of pancreas
     Route: 033
  2. TS-1 [Suspect]
     Active Substance: GIMERACIL\OTERACIL POTASSIUM\TEGAFUR
     Indication: Ductal adenocarcinoma of pancreas

REACTIONS (2)
  - Enterocolitis [Recovering/Resolving]
  - Laryngitis [Recovered/Resolved]
